FAERS Safety Report 4775610-2 (Version None)
Quarter: 2005Q3

REPORT INFORMATION
  Report Type: 
  Country: None (occurrence: None)
  Receive Date: 20050922
  Receipt Date: 20050804
  Transmission Date: 20060218
  Serious: Yes (Hospitalization)
  Sender: FDA-Public Use
  Company Number: AT-AMGEN-UK145649

PATIENT
  Sex: Female
  Weight: 85 kg

DRUGS (4)
  1. NEUPOGEN [Suspect]
     Indication: CHEMOTHERAPY
     Route: 058
     Dates: start: 20050716
  2. EPIRUBICIN [Suspect]
     Route: 041
     Dates: start: 20050715
  3. TAXOTERE [Suspect]
     Route: 041
     Dates: start: 20050715
  4. LEVOTHYROXINE SODIUM [Concomitant]
     Dates: start: 19980701

REACTIONS (1)
  - SUBCUTANEOUS ABSCESS [None]
